FAERS Safety Report 25589715 (Version 2)
Quarter: 2025Q3

REPORT INFORMATION
  Report Type: Spontaneous
  Country: JP (occurrence: JP)
  Receive Date: 20250722
  Receipt Date: 20250806
  Transmission Date: 20251020
  Serious: Yes (Other)
  Sender: RANBAXY
  Company Number: JP-SUN PHARMACEUTICAL INDUSTRIES LTD-2025R1-517425

PATIENT
  Age: 12 Year
  Sex: Female
  Weight: 45.5 kg

DRUGS (2)
  1. METOPROLOL [Suspect]
     Active Substance: METOPROLOL
     Indication: Graves^ disease
     Dosage: 60 MILLIGRAM, DAILY
     Route: 065
  2. METHIMAZOLE [Suspect]
     Active Substance: METHIMAZOLE
     Indication: Graves^ disease
     Dosage: 30 MILLIGRAM, DAILY
     Route: 065

REACTIONS (1)
  - Condition aggravated [Recovering/Resolving]
